FAERS Safety Report 8895491 (Version 1)
Quarter: 2012Q4

REPORT INFORMATION
  Report Type: 
  Country: US (occurrence: US)
  Receive Date: 20121107
  Receipt Date: 20121107
  Transmission Date: 20130627
  Serious: Yes (Hospitalization)
  Sender: FDA-Public Use
  Company Number: US-SPECIAR-2012-18786

PATIENT
  Age: 57 Year
  Sex: Female

DRUGS (2)
  1. GEMCITABINE [Suspect]
     Indication: BREAST CANCER
     Dosage: 1,250 mg/m2 days 1 and 8 of 21 day cycle
     Route: 065
  2. GEMCITABINE [Suspect]
     Dosage: then 2,260 mg on Oct 27, Nov 4, 17, 24
     Route: 065
     Dates: start: 201009

REACTIONS (2)
  - Posterior reversible encephalopathy syndrome [Recovered/Resolved]
  - Thrombocytopenia [Recovered/Resolved]
